FAERS Safety Report 9350896 (Version 2)
Quarter: 2013Q3

REPORT INFORMATION
  Report Type: Spontaneous
  Country: US (occurrence: US)
  Receive Date: 20130617
  Receipt Date: 20130708
  Transmission Date: 20140515
  Serious: Yes (Other)
  Sender: FDA-Public Use
  Company Number: US-BAYER-2013-072037

PATIENT
  Age: 35 Year
  Sex: Female
  Weight: 82 kg

DRUGS (3)
  1. MIRENA [Suspect]
     Indication: CONTRACEPTION
     Dosage: 20 MCG/24HR, CONT
     Route: 015
     Dates: start: 20130429, end: 20130607
  2. PROAIR HFA [Concomitant]
     Dosage: 90 UNK, UNK
  3. DURA AL [Concomitant]

REACTIONS (2)
  - Uterine haemorrhage [None]
  - Device dislocation [Recovered/Resolved]
